FAERS Safety Report 6302120-3 (Version None)
Quarter: 2009Q3

REPORT INFORMATION
  Report Type: 
  Country: None (occurrence: None)
  Receive Date: 20090807
  Receipt Date: 20090729
  Transmission Date: 20100115
  Serious: Yes (Hospitalization, Other)
  Sender: FDA-Public Use
  Company Number: TW-ABBOTT-09P-153-0588372-00

PATIENT
  Sex: Female
  Weight: 40 kg

DRUGS (2)
  1. REDUCTIL 15MG [Suspect]
     Indication: DRUG USE FOR UNKNOWN INDICATION
     Route: 048
     Dates: start: 20060101, end: 20070101
  2. REDUCTIL 15MG [Suspect]
     Dosage: 15-30 MILLIGRAMS, DAILY
     Route: 048
     Dates: start: 20070101

REACTIONS (8)
  - AGITATION [None]
  - DECREASED APPETITE [None]
  - DEPRESSION [None]
  - EAR DISCOMFORT [None]
  - HALLUCINATION [None]
  - INSOMNIA [None]
  - MENTAL IMPAIRMENT [None]
  - MOOD SWINGS [None]
